FAERS Safety Report 7038144-0 (Version None)
Quarter: 2010Q4

REPORT INFORMATION
  Report Type: 
  Country: None (occurrence: None)
  Receive Date: 20101011
  Receipt Date: 20100929
  Transmission Date: 20110411
  Serious: Yes (Death)
  Sender: FDA-Public Use
  Company Number: CI-WATSON-2010-12179

PATIENT
  Age: 32 Year
  Sex: Male

DRUGS (4)
  1. ISONIAZID [Suspect]
     Indication: TUBERCULOSIS
     Dosage: UNK
     Dates: start: 20050824
  2. RIFAMPICIN [Suspect]
     Indication: TUBERCULOSIS
     Dosage: UNK
     Dates: start: 20050824
  3. PYRAZINAMIDE [Suspect]
     Indication: TUBERCULOSIS
     Dosage: UNK
     Dates: start: 20050824
  4. ETHAMBUTOL HYDROCHLORIDE [Suspect]
     Indication: TUBERCULOSIS
     Dosage: UNK
     Dates: start: 20050824

REACTIONS (3)
  - ANAEMIA [None]
  - HYPONATRAEMIA [None]
  - TOXIC EPIDERMAL NECROLYSIS [None]
